FAERS Safety Report 8605813-8 (Version None)
Quarter: 2012Q3

REPORT INFORMATION
  Report Type: 
  Country: None (occurrence: None)
  Receive Date: 20120820
  Receipt Date: 20120813
  Transmission Date: 20120928
  Serious: Yes (Hospitalization)
  Sender: FDA-Public Use
  Company Number: US-GLAXOSMITHKLINE-A0964102A

PATIENT
  Age: 38 Year
  Sex: Female

DRUGS (7)
  1. METOPROLOL TARTRATE [Concomitant]
  2. REGLAN [Concomitant]
  3. FLOLAN [Suspect]
     Indication: PULMONARY ARTERIAL HYPERTENSION
     Dosage: 53NGKM SEE DOSAGE TEXT
     Route: 042
     Dates: start: 20061027
  4. MORPHINE [Concomitant]
  5. TRACLEER [Concomitant]
  6. DIGOXIN [Concomitant]
  7. COLACE [Concomitant]

REACTIONS (4)
  - CHEST PAIN [None]
  - INTESTINAL OBSTRUCTION [None]
  - HEADACHE [None]
  - FLUSHING [None]
